FAERS Safety Report 13086869 (Version 3)
Quarter: 2017Q1

REPORT INFORMATION
  Report Type: Spontaneous
  Country: DE (occurrence: DE)
  Receive Date: 20170104
  Receipt Date: 20170210
  Transmission Date: 20170428
  Serious: Yes (Other)
  Sender: FDA-Public Use
  Company Number: DE-JNJFOC-20161223795

PATIENT
  Sex: Female

DRUGS (2)
  1. REGAINE FRAUEN SCHAUM [Suspect]
     Active Substance: MINOXIDIL
     Indication: PRODUCT USED FOR UNKNOWN INDICATION
     Route: 061
  2. REGAINE FRAUEN SCHAUM [Suspect]
     Active Substance: MINOXIDIL
     Indication: PRODUCT USED FOR UNKNOWN INDICATION
     Route: 061

REACTIONS (4)
  - Ocular discomfort [Recovered/Resolved]
  - Eye swelling [Unknown]
  - Eye operation [Recovered/Resolved]
  - Eye haemorrhage [Recovered/Resolved]
